FAERS Safety Report 24570890 (Version 1)
Quarter: 2024Q4

REPORT INFORMATION
  Report Type: Spontaneous
  Country: CN (occurrence: CN)
  Receive Date: 20241101
  Receipt Date: 20241101
  Transmission Date: 20250114
  Serious: Yes (Hospitalization)
  Sender: BEIGENE
  Company Number: CN-BEIGENE-BGN-2024-017017

PATIENT

DRUGS (4)
  1. TISLELIZUMAB [Suspect]
     Active Substance: TISLELIZUMAB
     Indication: Lung neoplasm malignant
     Dosage: 200 MILLIGRAM, Q3WK D1
     Route: 041
     Dates: start: 20240222
  2. GEMCITABINE HYDROCHLORIDE [Suspect]
     Active Substance: GEMCITABINE HYDROCHLORIDE
     Indication: Lung neoplasm malignant
     Dosage: 1.2 GRAM, Q3WK D1,D8
     Route: 041
     Dates: start: 20240222
  3. ENDOSTATIN [Suspect]
     Active Substance: ENDOSTATIN
     Indication: Lung neoplasm malignant
     Dosage: 150 MILLIGRAM, Q3WK CIV 48H
     Route: 041
     Dates: start: 20240222, end: 20240222
  4. ENDOSTATIN [Suspect]
     Active Substance: ENDOSTATIN
     Dosage: 60 MILLIGRAM, Q3WK CIV 24H
     Route: 041
     Dates: start: 20240224

REACTIONS (1)
  - Myelosuppression [Recovering/Resolving]

NARRATIVE: CASE EVENT DATE: 20240305
